FAERS Safety Report 10791593 (Version 1)
Quarter: 2015Q1

REPORT INFORMATION
  Report Type: Spontaneous
  Country: US (occurrence: US)
  Receive Date: 20150213
  Receipt Date: 20150213
  Transmission Date: 20150721
  Serious: Yes (Hospitalization, Other)
  Sender: FDA-Public Use
  Company Number: US-GLAXOSMITHKLINE-US2015015521

PATIENT
  Age: 70 Year
  Sex: Female

DRUGS (11)
  1. FISH OIL [Concomitant]
     Active Substance: FISH OIL
  2. NEBULIZER (NAME UNKNOWN) [Concomitant]
  3. ADVAIR DISKUS [Suspect]
     Active Substance: FLUTICASONE PROPIONATE\SALMETEROL XINAFOATE
     Indication: ASTHMA
  4. ATORVASTATIN [Concomitant]
     Active Substance: ATORVASTATIN
  5. OXYGEN. [Concomitant]
     Active Substance: OXYGEN
  6. ALENDRONATE [Concomitant]
     Active Substance: ALENDRONATE SODIUM
  7. VITAMIN B12 [Concomitant]
     Active Substance: CYANOCOBALAMIN
  8. BIOTIN [Concomitant]
     Active Substance: BIOTIN
  9. METFORMIN [Concomitant]
     Active Substance: METFORMIN HYDROCHLORIDE
  10. ADVAIR DISKUS [Suspect]
     Active Substance: FLUTICASONE PROPIONATE\SALMETEROL XINAFOATE
     Indication: CHRONIC OBSTRUCTIVE PULMONARY DISEASE
     Dosage: 250/50
     Route: 055
     Dates: start: 20130201
  11. GLIMEPIRIDE. [Concomitant]
     Active Substance: GLIMEPIRIDE

REACTIONS (2)
  - Dyspnoea [Recovered/Resolved]
  - Pneumonia [Unknown]

NARRATIVE: CASE EVENT DATE: 20140201
